FAERS Safety Report 10206682 (Version 3)
Quarter: 2014Q2

REPORT INFORMATION
  Report Type: Spontaneous
  Country: JP (occurrence: JP)
  Receive Date: 20140530
  Receipt Date: 20140610
  Transmission Date: 20141212
  Serious: Yes (Disabling, Other)
  Sender: FDA-Public Use
  Company Number: JP-PFIZER INC-2014111026

PATIENT
  Age: 80 Year
  Sex: Male
  Weight: 64.1 kg

DRUGS (11)
  1. DETRUSITOL [Suspect]
     Indication: HYPERTONIC BLADDER
     Dosage: 4 MG, 1X/DAY
     Route: 048
     Dates: start: 20110623, end: 2014
  2. ADALAT [Concomitant]
     Dosage: 20 MG, 1X/DAY
     Route: 048
     Dates: start: 20090105
  3. ITOROL [Concomitant]
     Dosage: 20 MG, 2X/DAY
     Route: 048
     Dates: start: 20090105
  4. MAINTATE [Concomitant]
     Dosage: 5 MG, 2X/DAY
     Route: 048
     Dates: start: 20090105
  5. BLOPRESS [Concomitant]
     Dosage: 4 MG, 2X/DAY
     Route: 048
     Dates: start: 20090105
  6. AMOBAN [Concomitant]
     Dosage: 3.75 MG, 1X/DAY
     Route: 048
     Dates: start: 20090105
  7. LIPOVAS ^BANYU^ [Concomitant]
     Dosage: 5 MG, 1X/DAY
     Route: 048
     Dates: start: 20090105
  8. ZANTAC [Concomitant]
     Dosage: 250 MG, DAILY
     Route: 048
     Dates: start: 20090105
  9. BAYASPIRIN [Concomitant]
     Dosage: 100 MG, 1X/DAY
     Route: 048
     Dates: start: 20090105, end: 20140502
  10. PLAVIX [Concomitant]
     Dosage: 75 MG, 1X/DAY
     Route: 048
     Dates: start: 20090105
  11. BEPRICOR [Concomitant]
     Dosage: 50 MG, 1X/DAY
     Route: 048
     Dates: start: 20090105

REACTIONS (2)
  - Urinary retention [Not Recovered/Not Resolved]
  - Haematuria [Unknown]
